FAERS Safety Report 8817666 (Version 1)
Quarter: 2012Q4

REPORT INFORMATION
  Report Type: 
  Country: US (occurrence: US)
  Receive Date: 20121001
  Receipt Date: 20121001
  Transmission Date: 20130627
  Serious: Yes (Death, Hospitalization)
  Sender: FDA-Public Use
  Company Number: PHEH2012US018987

PATIENT
  Sex: Female

DRUGS (7)
  1. RECLAST [Suspect]
     Indication: OSTEOPOROSIS
     Dosage: 5 mg, UNK
     Route: 042
     Dates: start: 20110927
  2. CARAFATE [Concomitant]
     Dosage: 1 g, every four hours
     Route: 048
  3. SYNTHROID [Concomitant]
     Dosage: 100 mg, QD
     Route: 048
  4. SLOW-FE [Concomitant]
     Dosage: 160 mg, QD
     Route: 048
  5. VITAMIN D3 [Concomitant]
     Dosage: 2000 IU, QD
     Route: 048
  6. MAGNESIUM OXIDE [Concomitant]
     Dosage: 400 g, BID
     Route: 048
  7. PREDNISONE [Concomitant]
     Dosage: 5 mg alternate day, 2.5 mg QOD
     Route: 048

REACTIONS (2)
  - Cerebrovascular accident [Fatal]
  - Malaise [Fatal]
